FAERS Safety Report 4287191-0 (Version None)
Quarter: 2004Q1

REPORT INFORMATION
  Report Type: 
  Country: None (occurrence: None)
  Receive Date: 20040126
  Receipt Date: 20030905
  Transmission Date: 20041129
  Serious: No
  Sender: FDA-Public Use
  Company Number: USA030845208

PATIENT
  Age: 67 Year
  Sex: Female
  Weight: 57 kg

DRUGS (4)
  1. FORTEO [Suspect]
     Indication: OSTEOPOROSIS
     Dates: start: 20030614
  2. PREMARIN [Concomitant]
  3. SYNTHROID [Concomitant]
  4. MULTIVITAMIN [Concomitant]

REACTIONS (3)
  - MUSCLE TIGHTNESS [None]
  - PAIN IN JAW [None]
  - TRISMUS [None]
